FAERS Safety Report 8712883 (Version 3)
Quarter: 2012Q4

REPORT INFORMATION
  Report Type: 
  Country: US (occurrence: US)
  Receive Date: 20120808
  Receipt Date: 20121011
  Transmission Date: 20130627
  Serious: Yes (Other)
  Sender: FDA-Public Use
  Company Number: PHEH2012US015428

PATIENT
  Age: 33 None
  Sex: Female

DRUGS (4)
  1. GILENYA [Suspect]
     Indication: MULTIPLE SCLEROSIS
     Dosage: 0.5 mg, QD
     Route: 048
     Dates: start: 201108
  2. LAMICTAL [Concomitant]
     Indication: CONVULSION
     Dosage: 1 DF, BID
     Route: 048
     Dates: start: 2010
  3. KEPPRA [Concomitant]
     Indication: CONVULSION
     Dosage: 1 DF, BID
     Route: 048
     Dates: start: 201102
  4. DITROPAN [Concomitant]
     Indication: BLADDER DISORDER
     Dosage: 1 DF, BID
     Route: 048
     Dates: start: 200911

REACTIONS (4)
  - Complex partial seizures [Recovered/Resolved]
  - Confusional state [Recovered/Resolved]
  - Fall [Recovered/Resolved]
  - Joint dislocation [Recovered/Resolved]
